FAERS Safety Report 8967212 (Version 4)
Quarter: 2013Q3

REPORT INFORMATION
  Report Type: Report from Study
  Country: US (occurrence: US)
  Receive Date: 20121214
  Receipt Date: 20130725
  Transmission Date: 20140515
  Serious: Yes (Hospitalization)
  Sender: FDA-Public Use
  Company Number: US-GENZYME-MOZO-1000770

PATIENT
  Age: 59 Year
  Sex: Female
  Weight: 68.2 kg

DRUGS (83)
  1. MOZOBIL [Suspect]
     Indication: ACUTE MYELOID LEUKAEMIA
     Dosage: 14736 MCQ, QD, CYCLE 1
     Route: 058
     Dates: start: 20120620, end: 20120620
  2. MOZOBIL [Suspect]
     Dosage: 14736 MCQ, QD, CYCLE 1
     Route: 058
     Dates: start: 20120622, end: 20120622
  3. MOZOBIL [Suspect]
     Dosage: 14736 MCQ, QD, CYCLE 1
     Route: 058
     Dates: start: 20120624, end: 20120624
  4. MOZOBIL [Suspect]
     Dosage: 14736 MCQ, QD, CYCLE 1
     Route: 058
     Dates: start: 20120626, end: 20120626
  5. MOZOBIL [Suspect]
     Dosage: 14736 MCQ, QD, CYCLE 1
     Route: 058
     Dates: start: 20120628, end: 20120628
  6. MOZOBIL [Suspect]
     Dosage: 14736 MCQ, QD, CYCLE 1
     Route: 058
     Dates: start: 20120630, end: 20120630
  7. MOZOBIL [Suspect]
     Dosage: 14736 MCQ, QD, CYCLE 1
     Route: 058
     Dates: start: 20120702, end: 20120702
  8. MOZOBIL [Suspect]
     Dosage: 13416 MCQ, QD, CYCLE 2
     Route: 058
     Dates: start: 20120718, end: 20120718
  9. MOZOBIL [Suspect]
     Dosage: 13416 MCQ, QD, CYCLE 2
     Route: 058
     Dates: start: 20120720, end: 20120720
  10. MOZOBIL [Suspect]
     Dosage: 13416 MCQ, QD, CYCLE 2
     Route: 058
     Dates: start: 20120722, end: 20120722
  11. MOZOBIL [Suspect]
     Dosage: 13416 MCQ, QD, CYCLE 2
     Route: 058
     Dates: start: 20120724, end: 20120724
  12. MOZOBIL [Suspect]
     Dosage: 13416 MCQ, QD, CYCLE 2
     Route: 058
     Dates: start: 20120726, end: 20120726
  13. MOZOBIL [Suspect]
     Dosage: 13416 MCQ, QD, CYCLE 2
     Route: 058
     Dates: start: 20120728, end: 20120728
  14. MOZOBIL [Suspect]
     Dosage: 13416 MCQ, QD, CYCLE 2
     Route: 058
     Dates: start: 20120730, end: 20120730
  15. MOZOBIL [Suspect]
     Dosage: 13150 MCQ, QD, CYCLE 3
     Route: 058
     Dates: start: 20120816, end: 20120816
  16. MOZOBIL [Suspect]
     Dosage: 13150 UNK, QD, CYCLE 3
     Route: 058
     Dates: start: 20120818, end: 20120818
  17. MOZOBIL [Suspect]
     Dosage: 13150 MCQ, QD, CYCLE 3
     Route: 058
     Dates: start: 20120820, end: 20120820
  18. MOZOBIL [Suspect]
     Dosage: 13150 MCQ, QD, CYCLE 3
     Route: 058
     Dates: start: 20120822, end: 20120822
  19. MOZOBIL [Suspect]
     Dosage: 13150 MCQ, QD, CYCLE 3
     Route: 058
     Dates: start: 20120824, end: 20120824
  20. MOZOBIL [Suspect]
     Dosage: 13150 MCQ, QD, CYCLE 3
     Route: 058
     Dates: start: 20120826, end: 20120826
  21. MOZOBIL [Suspect]
     Dosage: 13150 MCQ, QD, CYCLE 3
     Route: 058
     Dates: start: 20120828, end: 20120828
  22. MOZOBIL [Suspect]
     Dosage: 13150 MCQ, QD, CYCLE 4
     Route: 058
     Dates: start: 20120913, end: 20120913
  23. MOZOBIL [Suspect]
     Dosage: 13150 MCQ, QD, CYCLE 4
     Route: 058
     Dates: start: 20120915, end: 20120915
  24. MOZOBIL [Suspect]
     Dosage: 13150 MCQ, QD, CYCLE 4
     Route: 058
     Dates: start: 20120917, end: 20120917
  25. MOZOBIL [Suspect]
     Dosage: 13150 MCQ, QD, CYCLE 4
     Route: 058
     Dates: start: 20120919, end: 20120919
  26. MOZOBIL [Suspect]
     Dosage: 13150 MCQ, QD, CYCLE 4
     Route: 058
     Dates: start: 20120921, end: 20120921
  27. MOZOBIL [Suspect]
     Dosage: 13150 MCQ, QD, CYCLE 4
     Route: 058
     Dates: start: 20120923, end: 20120923
  28. MOZOBIL [Suspect]
     Dosage: 13150 MCQ, QD, CYCLE 4
     Route: 058
     Dates: start: 20120925, end: 20120925
  29. SORAFENIB [Suspect]
     Indication: ACUTE MYELOID LEUKAEMIA
     Dosage: 800 MG, QD ON DAYS 1-28 (CYCLE 1)
     Route: 065
     Dates: start: 20120620, end: 20120717
  30. SORAFENIB [Suspect]
     Dosage: 800 MG, QD (CYCLE 2)
     Route: 065
     Dates: start: 20120718, end: 20120722
  31. SORAFENIB [Suspect]
     Dosage: 600 MG, BID (CYCLE 2)
     Route: 065
     Dates: start: 20120726, end: 20120803
  32. SORAFENIB [Suspect]
     Dosage: 600 MG, BID, ON DAYS 1-28 (CYCLE 3)
     Route: 065
     Dates: start: 20120816, end: 20120912
  33. SORAFENIB [Suspect]
     Dosage: 400 MG, BID, ON DAYS 1-9 (CYCLE 4)
     Route: 065
     Dates: start: 20120913, end: 20120921
  34. SORAFENIB [Suspect]
     Dosage: 600 MG, BID STARTING WITH PM DOSE AND CONTINUED TO DAY 28
     Route: 065
     Dates: start: 20120921
  35. NEUPOGEN [Suspect]
     Indication: ACUTE MYELOID LEUKAEMIA
     Dosage: 6000 MCG, QD, CYCLE 1
     Route: 058
     Dates: start: 20120620, end: 20120620
  36. NEUPOGEN [Suspect]
     Dosage: 6000 MCG, QD, CYCLE 1
     Route: 058
     Dates: start: 20120622, end: 20120622
  37. NEUPOGEN [Suspect]
     Dosage: 6000 MCG, QD, CYCLE 1
     Route: 058
     Dates: start: 20120624, end: 20120624
  38. NEUPOGEN [Suspect]
     Dosage: 6000 MCG, QD, CYCLE 1
     Route: 058
     Dates: start: 20120626, end: 20120626
  39. NEUPOGEN [Suspect]
     Dosage: 6000 MCG, QD, CYCLE 1
     Route: 058
     Dates: start: 20120628, end: 20120628
  40. NEUPOGEN [Suspect]
     Dosage: 6000 MCG, QD, CYCLE 1
     Route: 058
     Dates: start: 20120630, end: 20120630
  41. NEUPOGEN [Suspect]
     Dosage: 6000 MCG, QD, CYCLE 1
     Route: 058
     Dates: start: 20120702, end: 20120702
  42. NEUPOGEN [Suspect]
     Dosage: 6000 MCG, QD, CYCLE 2
     Route: 058
     Dates: start: 20120718, end: 20120718
  43. NEUPOGEN [Suspect]
     Dosage: 6000 MCG, QD, CYCLE 2
     Route: 058
     Dates: start: 20120720, end: 20120720
  44. NEUPOGEN [Suspect]
     Dosage: 6000 MCG, QD, CYCLE 2
     Route: 058
     Dates: start: 20120722, end: 20120722
  45. NEUPOGEN [Suspect]
     Dosage: 6000 MCG, QD, CYCLE 2
     Route: 058
     Dates: start: 20120724, end: 20120724
  46. NEUPOGEN [Suspect]
     Dosage: 6000 MCG, QD, CYCLE 2
     Route: 058
     Dates: start: 20120726, end: 20120726
  47. NEUPOGEN [Suspect]
     Dosage: 6000 MCG, QD, CYCLE 2
     Route: 058
     Dates: start: 20120728, end: 20120728
  48. NEUPOGEN [Suspect]
     Dosage: 6000 MCG, QD, CYCLE 2
     Route: 058
     Dates: start: 20120730, end: 20120730
  49. NEUPOGEN [Suspect]
     Dosage: 600 MCG, QD, CYCLE 3
     Route: 058
     Dates: start: 20120816, end: 20120816
  50. NEUPOGEN [Suspect]
     Dosage: 600 MCG, QD, CYCLE 3
     Route: 058
     Dates: start: 20120818, end: 20120818
  51. NEUPOGEN [Suspect]
     Dosage: 600 MCG, QD, CYCLE 3
     Route: 058
     Dates: start: 20120820, end: 20120820
  52. NEUPOGEN [Suspect]
     Dosage: 600 MCG, QD, CYCLE 3
     Route: 058
     Dates: start: 20120822, end: 20120822
  53. NEUPOGEN [Suspect]
     Dosage: 600 MCG, QD, CYCLE 3
     Route: 058
     Dates: start: 20120824, end: 20120824
  54. NEUPOGEN [Suspect]
     Dosage: 600 MCG, QD, CYCLE 3
     Route: 058
     Dates: start: 20120826, end: 20120826
  55. NEUPOGEN [Suspect]
     Dosage: 600 MCG, QD, CYCLE 3
     Route: 058
     Dates: start: 20120828, end: 20120828
  56. NEUPOGEN [Suspect]
     Dosage: 600 MCG, QD, CYCLE 4
     Route: 058
     Dates: start: 20120913, end: 20120913
  57. NEUPOGEN [Suspect]
     Dosage: 600 MCG, QD, CYCLE 4
     Route: 058
     Dates: start: 20120915, end: 20120915
  58. NEUPOGEN [Suspect]
     Dosage: 600 MCG, QD, CYCLE 4
     Route: 058
     Dates: start: 20120917, end: 20120917
  59. NEUPOGEN [Suspect]
     Dosage: 600 MCG, QD, CYCLE 4
     Route: 058
     Dates: start: 20120919, end: 20120919
  60. NEUPOGEN [Suspect]
     Dosage: 600 MCG, QD, CYCLE 4
     Route: 058
     Dates: start: 20120921, end: 20120921
  61. NEUPOGEN [Suspect]
     Dosage: 600 MCG, QD, CYCLE 4
     Route: 058
     Dates: start: 20120923, end: 20120923
  62. NEUPOGEN [Suspect]
     Dosage: 600 MCG, QD, CYCLE 4
     Route: 058
     Dates: start: 20120925, end: 20120925
  63. PANTOPRAZOLE SODIUM [Concomitant]
     Indication: GASTROOESOPHAGEAL REFLUX DISEASE
     Dosage: UNK
     Route: 065
     Dates: start: 20111130, end: 20121115
  64. URSODIOL [Concomitant]
     Indication: CHOLELITHIASIS
     Dosage: UNK
     Route: 065
     Dates: start: 20120307, end: 20121115
  65. ONDANSETRON [Concomitant]
     Indication: NAUSEA
     Dosage: UNK
     Route: 065
     Dates: start: 20120314, end: 20121115
  66. OXYCODONE [Concomitant]
     Indication: CANCER PAIN
     Dosage: UNK
     Route: 065
     Dates: start: 20120314, end: 20121115
  67. TACROLIMUS [Concomitant]
     Indication: PROPHYLAXIS AGAINST GRAFT VERSUS HOST DISEASE
     Dosage: UNK
     Route: 065
     Dates: start: 20120405, end: 20120810
  68. VALACICLOVIR [Concomitant]
     Indication: INFECTION PROPHYLAXIS
     Dosage: UNK
     Route: 065
     Dates: start: 20120424, end: 20121115
  69. TOLTERODINE L-TARTRATE [Concomitant]
     Indication: PROPHYLAXIS
     Dosage: UNK
     Route: 065
     Dates: start: 20120416, end: 20121115
  70. SENOKOT-S [Concomitant]
     Indication: CONSTIPATION
     Dosage: UNK
     Route: 065
     Dates: start: 20120510, end: 20121115
  71. PENTAMIDINE [Concomitant]
     Indication: PROPHYLAXIS
     Dosage: UNK
     Route: 065
     Dates: start: 20120601, end: 20121115
  72. DIPHENHYDRAMINE [Concomitant]
     Indication: PREMEDICATION
     Dosage: UNK
     Route: 065
     Dates: start: 20120608, end: 20121115
  73. ACETAMINOPHEN [Concomitant]
     Indication: PREMEDICATION
     Dosage: UNK
     Route: 065
     Dates: start: 20120614, end: 20121115
  74. HYDROCORTISONE [Concomitant]
     Indication: PREMEDICATION
     Dosage: UNK
     Route: 065
     Dates: start: 20120614, end: 20121115
  75. LOPERAMIDE [Concomitant]
     Indication: DIARRHOEA
     Dosage: UNK
     Route: 065
     Dates: start: 20120724, end: 20121115
  76. MICAFUNGIN [Concomitant]
     Indication: INFECTION PROPHYLAXIS
     Dosage: UNK
     Route: 065
     Dates: start: 20120724, end: 20121115
  77. LEVAQUIN [Concomitant]
     Indication: INFECTION PROPHYLAXIS
     Dosage: UNK
     Route: 065
     Dates: start: 20120730, end: 20121115
  78. HEPARIN [Concomitant]
     Indication: DEVICE OCCLUSION
     Dosage: UNK
     Route: 065
     Dates: start: 20120724, end: 20121115
  79. MAGNESIUM SULFATE [Concomitant]
     Indication: MINERAL SUPPLEMENTATION
     Dosage: UNK
     Route: 065
     Dates: start: 20120808, end: 20121115
  80. POTASSIUM CHLORIDE [Concomitant]
     Indication: MINERAL SUPPLEMENTATION
     Dosage: UNK
     Route: 065
     Dates: start: 20120806, end: 20120811
  81. LINEZOLID [Concomitant]
     Indication: INFECTION PROPHYLAXIS
     Dosage: UNK
     Route: 065
     Dates: start: 20120809, end: 20120810
  82. ARTIFICIAL TEARS [Concomitant]
     Indication: DRY EYE
     Dosage: UNK
     Route: 065
     Dates: start: 20120302, end: 20121115
  83. ARTIFICIAL TEARS [Concomitant]
     Indication: DRY EYE
     Dosage: UNK
     Route: 065
     Dates: start: 20120302, end: 20121115

REACTIONS (3)
  - Hyperbilirubinaemia [Not Recovered/Not Resolved]
  - Graft versus host disease in liver [Recovered/Resolved]
  - Febrile neutropenia [Recovered/Resolved]
